FAERS Safety Report 11057117 (Version 1)
Quarter: 2015Q2

REPORT INFORMATION
  Report Type: Report from Study
  Country: US (occurrence: US)
  Receive Date: 20150422
  Receipt Date: 20150422
  Transmission Date: 20150821
  Serious: Yes (Other)
  Sender: FDA-Public Use
  Company Number: US-BAYER-2015-045089

PATIENT
  Age: 36 Year
  Sex: Male

DRUGS (5)
  1. ACETAMINOPHEN. [Concomitant]
     Active Substance: ACETAMINOPHEN
  2. BETASERON [Suspect]
     Active Substance: INTERFERON BETA-1B
     Indication: CLINICALLY ISOLATED SYNDROME
     Dosage: 2 MIU, QOD
     Route: 058
     Dates: start: 201502
  3. IBUPROFEN. [Concomitant]
     Active Substance: IBUPROFEN
     Dosage: UNK
  4. BETASERON [Suspect]
     Active Substance: INTERFERON BETA-1B
     Indication: CLINICALLY ISOLATED SYNDROME
     Dosage: 4 MIU, EVERY OTHER DAY
     Route: 058
     Dates: start: 20150223, end: 201502
  5. WELLBUTRIN XL [Concomitant]
     Active Substance: BUPROPION HYDROCHLORIDE

REACTIONS (12)
  - Balance disorder [None]
  - Chest discomfort [Recovering/Resolving]
  - Nasopharyngitis [Recovered/Resolved]
  - Depressed mood [Not Recovered/Not Resolved]
  - Abdominal pain lower [Not Recovered/Not Resolved]
  - Dizziness [Recovering/Resolving]
  - Crying [Not Recovered/Not Resolved]
  - Heart rate increased [Recovering/Resolving]
  - Feeling hot [Not Recovered/Not Resolved]
  - Tremor [Recovering/Resolving]
  - Rhinorrhoea [Recovered/Resolved]
  - Chills [Not Recovered/Not Resolved]

NARRATIVE: CASE EVENT DATE: 20150223
